FAERS Safety Report 8860912 (Version 1)
Quarter: 2012Q4

REPORT INFORMATION
  Report Type: 
  Country: US (occurrence: US)
  Receive Date: 20121025
  Receipt Date: 20121025
  Transmission Date: 20130627
  Serious: Yes (Other)
  Sender: FDA-Public Use
  Company Number: PHHY2012US094619

PATIENT
  Sex: Female

DRUGS (1)
  1. ASCRIPTIN BUFFERED MAX STRENGTH CAPLETS [Suspect]
     Indication: PAIN
     Dosage: 2 DF, Q4H
     Route: 048
     Dates: start: 1982

REACTIONS (2)
  - Haemorrhagic diathesis [Unknown]
  - Incorrect dose administered [Unknown]
